FAERS Safety Report 9842128 (Version 10)
Quarter: 2014Q4

REPORT INFORMATION
  Report Type: Report from Study
  Country: US (occurrence: US)
  Receive Date: 20140124
  Receipt Date: 20141205
  Transmission Date: 20150529
  Serious: Yes (Other)
  Sender: FDA-Public Use
  Company Number: US-ALEXION-A201400070

PATIENT

DRUGS (1)
  1. SOLIRIS [Suspect]
     Active Substance: ECULIZUMAB
     Indication: PAROXYSMAL NOCTURNAL HAEMOGLOBINURIA
     Dosage: 900 MG, Q2W
     Route: 042
     Dates: start: 20131106, end: 20140908

REACTIONS (28)
  - Seizure [Not Recovered/Not Resolved]
  - Hypersomnia [Unknown]
  - Haemoglobin abnormal [Unknown]
  - Back pain [Unknown]
  - Myelodysplastic syndrome [Unknown]
  - Dehydration [Unknown]
  - Upper respiratory tract infection [Not Recovered/Not Resolved]
  - Fatigue [Not Recovered/Not Resolved]
  - Drug ineffective [Not Recovered/Not Resolved]
  - Fatigue [Not Recovered/Not Resolved]
  - Diarrhoea [Not Recovered/Not Resolved]
  - Pyrexia [Not Recovered/Not Resolved]
  - Feeling abnormal [Not Recovered/Not Resolved]
  - Arthropod bite [Unknown]
  - Urinary tract infection [Not Recovered/Not Resolved]
  - Cellulitis [Unknown]
  - Blood count abnormal [Unknown]
  - Fall [Unknown]
  - Contusion [Unknown]
  - Loss of consciousness [Unknown]
  - Blood iron increased [Unknown]
  - Blood count abnormal [Unknown]
  - Hyperhidrosis [Unknown]
  - Myalgia [Not Recovered/Not Resolved]
  - Tremor [Unknown]
  - Asthenia [Unknown]
  - Toothache [Unknown]
  - Gastroenteritis [Unknown]

NARRATIVE: CASE EVENT DATE: 2014
